FAERS Safety Report 20700346 (Version 1)
Quarter: 2022Q2

REPORT INFORMATION
  Report Type: Spontaneous
  Country: US (occurrence: None)
  Receive Date: 20220411
  Receipt Date: 20220411
  Transmission Date: 20220721
  Serious: Yes (Other)
  Sender: FDA-Public Use
  Company Number: None

PATIENT
  Age: 74 Year
  Sex: Female

DRUGS (1)
  1. ENBREL [Suspect]
     Active Substance: ETANERCEPT
     Indication: Rheumatoid arthritis
     Dosage: 25 MG/0.5ML ?INJECT 1 SYRINGE (25 MG) UNDER THE SKIN (SUBCUTANEOUS INJECTION) TWICE WEEKLY?
     Route: 058
     Dates: start: 20180907

REACTIONS (2)
  - Colon cancer [None]
  - Cancer surgery [None]

NARRATIVE: CASE EVENT DATE: 20220208
